FAERS Safety Report 11992207 (Version 4)
Quarter: 2016Q2

REPORT INFORMATION
  Report Type: Report from Study
  Country: US (occurrence: US)
  Receive Date: 20160203
  Receipt Date: 20160413
  Transmission Date: 20160815
  Serious: Yes (Death, Hospitalization, Other)
  Sender: FDA-Public Use
  Company Number: US-ASTRAZENECA-2015SF30795

PATIENT
  Age: 701 Month
  Sex: Female

DRUGS (11)
  1. TAGRISSO [Interacting]
     Active Substance: OSIMERTINIB
     Indication: LUNG CARCINOMA CELL TYPE UNSPECIFIED STAGE 0
     Route: 048
     Dates: start: 20160101
  2. MORPHINE SULFATE. [Concomitant]
     Active Substance: MORPHINE SULFATE
  3. FENTANYL. [Concomitant]
     Active Substance: FENTANYL
  4. WARFARIN [Concomitant]
     Active Substance: WARFARIN
  5. DECADRON [Concomitant]
     Active Substance: DEXAMETHASONE
  6. COUMADIN [Concomitant]
     Active Substance: WARFARIN SODIUM
  7. KEPPRA [Concomitant]
     Active Substance: LEVETIRACETAM
  8. DILAUDID [Concomitant]
     Active Substance: HYDROMORPHONE HYDROCHLORIDE
  9. TAGRISSO [Suspect]
     Active Substance: OSIMERTINIB
     Indication: LUNG CARCINOMA CELL TYPE UNSPECIFIED STAGE 0
     Route: 048
     Dates: start: 20151219, end: 20151220
  10. LEVAQUIN [Concomitant]
     Active Substance: LEVOFLOXACIN
  11. VALIUM [Concomitant]
     Active Substance: DIAZEPAM

REACTIONS (12)
  - Pyrexia [Unknown]
  - Radiation interaction [Unknown]
  - Vomiting [Unknown]
  - Thrombosis [Unknown]
  - Faeces soft [Not Recovered/Not Resolved]
  - Fatigue [Not Recovered/Not Resolved]
  - Skin discolouration [Not Recovered/Not Resolved]
  - Ligament sprain [Unknown]
  - Urinary tract infection [Unknown]
  - Pruritus [Unknown]
  - Death [Fatal]
  - Clostridium difficile infection [Unknown]

NARRATIVE: CASE EVENT DATE: 201512
